FAERS Safety Report 15200523 (Version 1)
Quarter: 2018Q3

REPORT INFORMATION
  Report Type: Other
  Country: DE (occurrence: DE)
  Receive Date: 20180726
  Receipt Date: 20180726
  Transmission Date: 20181010
  Serious: No
  Sender: FDA-Public Use
  Company Number: DE-LUPIN PHARMACEUTICALS INC.-2018-04361

PATIENT
  Sex: Female
  Weight: 86 kg

DRUGS (9)
  1. FLUVASTATIN [Suspect]
     Active Substance: FLUVASTATIN SODIUM
     Indication: ARTERIAL OCCLUSIVE DISEASE
     Dosage: 10 MG, QD
     Route: 048
  2. FLUVASTATIN [Suspect]
     Active Substance: FLUVASTATIN SODIUM
     Indication: PERIPHERAL ARTERIAL OCCLUSIVE DISEASE
  3. FLUVASTATIN [Suspect]
     Active Substance: FLUVASTATIN SODIUM
     Indication: CORONARY ARTERY DISEASE
  4. SIMVASTATIN. [Suspect]
     Active Substance: SIMVASTATIN
     Indication: PERIPHERAL ARTERIAL OCCLUSIVE DISEASE
  5. ATORVASTATIN [Suspect]
     Active Substance: ATORVASTATIN
     Indication: PERIPHERAL ARTERIAL OCCLUSIVE DISEASE
     Dosage: 10 MG, QD
     Route: 048
  6. ATORVASTATIN [Suspect]
     Active Substance: ATORVASTATIN
     Indication: ARTERIAL OCCLUSIVE DISEASE
  7. SIMVASTATIN. [Suspect]
     Active Substance: SIMVASTATIN
     Indication: ARTERIAL OCCLUSIVE DISEASE
     Dosage: 10 MG, QD
     Route: 048
  8. SIMVASTATIN. [Suspect]
     Active Substance: SIMVASTATIN
     Indication: CORONARY ARTERY DISEASE
  9. ATORVASTATIN [Suspect]
     Active Substance: ATORVASTATIN
     Indication: CORONARY ARTERY DISEASE

REACTIONS (1)
  - Muscle spasms [Recovered/Resolved]
